FAERS Safety Report 18198848 (Version 1)
Quarter: 2020Q3

REPORT INFORMATION
  Report Type: Spontaneous
  Country: FR (occurrence: FR)
  Receive Date: 20200826
  Receipt Date: 20200826
  Transmission Date: 20201103
  Serious: Yes (Hospitalization)
  Sender: FDA-Public Use
  Company Number: FR-MYLANLABS-2020M1073868

PATIENT
  Age: 87 Year
  Sex: Female
  Weight: 68 kg

DRUGS (1)
  1. PREDNISOLONE. [Suspect]
     Active Substance: PREDNISOLONE
     Indication: IMMUNE THROMBOCYTOPENIA
     Dosage: 1 UNK, QD
     Route: 048
     Dates: start: 20180523, end: 201806

REACTIONS (3)
  - Pulmonary embolism [Recovered/Resolved]
  - Haemolytic anaemia [Recovered/Resolved]
  - Methaemoglobinaemia [Unknown]

NARRATIVE: CASE EVENT DATE: 201806
